FAERS Safety Report 6105808-2 (Version None)
Quarter: 2009Q1

REPORT INFORMATION
  Report Type: 
  Country: None (occurrence: None)
  Receive Date: 20090227
  Receipt Date: 20081222
  Transmission Date: 20090719
  Serious: Yes (Hospitalization)
  Sender: FDA-Public Use
  Company Number: 183012USA

PATIENT
  Age: 59 Year
  Sex: Female

DRUGS (5)
  1. VENLAFAXINE HYDROCHLORIDE [Suspect]
     Indication: CONVULSION
     Dosage: 75 MG (37.5 MG, 2 IN 1 D), ORAL
     Route: 048
     Dates: start: 20081009, end: 20081001
  2. ALPRAZOLAM [Concomitant]
  3. LAMOTRIGINE [Concomitant]
  4. QUETIAPINE FUMARATE [Concomitant]
  5. ESTRADIOL [Concomitant]

REACTIONS (3)
  - CONVULSION [None]
  - HALLUCINATION [None]
  - LOSS OF CONSCIOUSNESS [None]
